FAERS Safety Report 4651262-7 (Version None)
Quarter: 2005Q2

REPORT INFORMATION
  Report Type: 
  Country: None (occurrence: None)
  Receive Date: 20050331
  Receipt Date: 20050131
  Transmission Date: 20051028
  Serious: No
  Sender: FDA-Public Use
  Company Number: 05P-163-0288805-00

PATIENT
  Age: 54 Year
  Sex: Male
  Weight: 91 kg

DRUGS (9)
  1. HUMIRA [Suspect]
     Indication: RHEUMATOID ARTHRITIS
     Dosage: 40 MG, 1 IN 2 WK, SUBCUTANEOUS
     Route: 058
     Dates: start: 20030101
  2. METHOTREXATE [Concomitant]
  3. PREDNISONE TAB [Concomitant]
  4. ATORVASTATIN [Concomitant]
  5. METOPROLOL [Concomitant]
  6. DIGOXIN [Concomitant]
  7. METHADONE HCL [Concomitant]
  8. VICODIN [Concomitant]
  9. LISINOPRIL [Concomitant]

REACTIONS (1)
  - INJECTION SITE IRRITATION [None]
